FAERS Safety Report 4682630-5 (Version None)
Quarter: 2005Q2

REPORT INFORMATION
  Report Type: 
  Country: None (occurrence: None)
  Receive Date: 20050606
  Receipt Date: 20050329
  Transmission Date: 20051028
  Serious: Yes (Hospitalization, Other)
  Sender: FDA-Public Use
  Company Number: US-GLAXOSMITHKLINE-A0552412A

PATIENT
  Age: 10 Year
  Sex: Male

DRUGS (5)
  1. PAXIL [Suspect]
     Indication: ATTENTION DEFICIT/HYPERACTIVITY DISORDER
     Dosage: 20MG PER DAY
     Route: 048
     Dates: start: 20000405, end: 20020701
  2. CLONIDINE [Concomitant]
     Indication: DRUG USE FOR UNKNOWN INDICATION
     Route: 065
  3. NEURONTIN [Concomitant]
     Indication: DRUG USE FOR UNKNOWN INDICATION
     Route: 065
  4. SEROQUEL [Concomitant]
     Indication: DRUG USE FOR UNKNOWN INDICATION
     Route: 065
  5. ADDERALL [Concomitant]
     Indication: DRUG USE FOR UNKNOWN INDICATION
     Route: 065

REACTIONS (8)
  - AGGRESSION [None]
  - HALLUCINATION, AUDITORY [None]
  - HEAD BANGING [None]
  - HOMICIDAL IDEATION [None]
  - REFUSAL OF TREATMENT BY PATIENT [None]
  - SELF MUTILATION [None]
  - SLEEP DISORDER [None]
  - SUICIDAL IDEATION [None]
